FAERS Safety Report 8994677 (Version 1)
Quarter: 2012Q4

REPORT INFORMATION
  Report Type: Spontaneous
  Country: US (occurrence: None)
  Receive Date: 20121228
  Receipt Date: 20121228
  Transmission Date: 20130627
  Serious: Yes (Hospitalization)
  Sender: FDA-Public Use
  Company Number: None

PATIENT
  Age: 15 Year
  Sex: Male
  Weight: 72.9 kg

DRUGS (5)
  1. TYGACIL [Suspect]
     Indication: APPENDICITIS
     Route: 042
     Dates: start: 20121216, end: 20121220
  2. ONDANSETRON [Concomitant]
  3. HYDROCODONE-ACETAMINOPHEN [Concomitant]
  4. MORPHINE PCA [Concomitant]
  5. PROMETHAZINE [Concomitant]

REACTIONS (1)
  - Pancreatitis [None]
